FAERS Safety Report 10541186 (Version 3)
Quarter: 2014Q4

REPORT INFORMATION
  Report Type: Spontaneous
  Country: GB (occurrence: GB)
  Receive Date: 20141024
  Receipt Date: 20141201
  Transmission Date: 20150529
  Serious: Yes (Death, Other)
  Sender: FDA-Public Use
  Company Number: GB-SA-2014SA141761

PATIENT
  Age: 66 Year
  Sex: Female
  Weight: 50 kg

DRUGS (6)
  1. DEXAMETHASONE. [Concomitant]
     Active Substance: DEXAMETHASONE
     Route: 048
     Dates: start: 20140703, end: 20140706
  2. XELODA [Suspect]
     Active Substance: CAPECITABINE
     Indication: ADJUVANT THERAPY
     Route: 048
     Dates: start: 20140704, end: 20140709
  3. DOMPERIDONE [Concomitant]
     Active Substance: DOMPERIDONE
     Route: 048
     Dates: start: 20140703, end: 20140709
  4. LOPERAMIDE [Concomitant]
     Active Substance: LOPERAMIDE
     Indication: DIARRHOEA
     Route: 048
     Dates: start: 20140703, end: 20140709
  5. OXALIPLATIN. [Suspect]
     Active Substance: OXALIPLATIN
     Indication: ADJUVANT THERAPY
     Route: 042
     Dates: start: 20140703, end: 20140703
  6. XELODA [Suspect]
     Active Substance: CAPECITABINE
     Indication: ADJUVANT THERAPY
     Route: 065

REACTIONS (9)
  - Sudden death [Fatal]
  - Stoma complication [Unknown]
  - Vomiting [Unknown]
  - Cardiac arrest [Fatal]
  - Electrolyte imbalance [Unknown]
  - Nausea [Unknown]
  - Circulatory collapse [Unknown]
  - Arrhythmia [Fatal]
  - Dysgeusia [Unknown]

NARRATIVE: CASE EVENT DATE: 20140709
